FAERS Safety Report 12855528 (Version 1)
Quarter: 2016Q4

REPORT INFORMATION
  Report Type: Spontaneous
  Country: US (occurrence: US)
  Receive Date: 20161017
  Receipt Date: 20161017
  Transmission Date: 20170207
  Serious: No
  Sender: FDA-Public Use
  Company Number: US-BIOGEN-2016BI00303065

PATIENT
  Age: 53 Year
  Sex: Female

DRUGS (1)
  1. AVONEX [Suspect]
     Active Substance: INTERFERON BETA-1A
     Indication: MULTIPLE SCLEROSIS
     Route: 030
     Dates: start: 20160825

REACTIONS (7)
  - Facial pain [Unknown]
  - Pain [Recovered/Resolved]
  - Mobility decreased [Unknown]
  - Jaw disorder [Unknown]
  - Tongue biting [Unknown]
  - Influenza [Unknown]
  - Feeling hot [Unknown]

NARRATIVE: CASE EVENT DATE: 20161010
